FAERS Safety Report 23493891 (Version 2)
Quarter: 2024Q3

REPORT INFORMATION
  Report Type: Spontaneous
  Country: US (occurrence: US)
  Receive Date: 20240207
  Receipt Date: 20240801
  Transmission Date: 20241017
  Serious: No
  Sender: SANOFI AVENTIS
  Company Number: US-SA-SAC20240131000555

PATIENT
  Age: 19 Year
  Sex: Female

DRUGS (1)
  1. DUPIXENT [Suspect]
     Active Substance: DUPILUMAB
     Indication: Dermatitis atopic
     Dosage: 300 MG, QOW
     Route: 058

REACTIONS (7)
  - Muscle tightness [Unknown]
  - Rash erythematous [Unknown]
  - Insomnia [Unknown]
  - Pruritus [Unknown]
  - Dermatitis atopic [Unknown]
  - Injection site swelling [Unknown]
  - Injection site pain [Unknown]
